FAERS Safety Report 25770478 (Version 4)
Quarter: 2025Q4

REPORT INFORMATION
  Report Type: Spontaneous
  Country: US (occurrence: US)
  Receive Date: 20250908
  Receipt Date: 20251207
  Transmission Date: 20260118
  Serious: Yes (Other)
  Sender: ASTELLAS
  Company Number: US-ASTELLAS-2025-AER-047912

PATIENT
  Age: 67 Year
  Sex: Female

DRUGS (2)
  1. PADCEV [Suspect]
     Active Substance: ENFORTUMAB VEDOTIN-EJFV
     Indication: Product used for unknown indication
     Route: 065
     Dates: start: 202508, end: 202508
  2. PADCEV [Suspect]
     Active Substance: ENFORTUMAB VEDOTIN-EJFV
     Dosage: C1D8
     Route: 065
     Dates: start: 20250818, end: 20250818

REACTIONS (6)
  - Wound [Unknown]
  - Infusion site extravasation [Not Recovered/Not Resolved]
  - Infusion site erythema [Unknown]
  - Wound secretion [Unknown]
  - Infusion site swelling [Unknown]
  - Pain in extremity [Unknown]

NARRATIVE: CASE EVENT DATE: 20250801
